FAERS Safety Report 9569801 (Version 1)
Quarter: 2013Q3

REPORT INFORMATION
  Report Type: Spontaneous
  Country: US (occurrence: US)
  Receive Date: 20130930
  Receipt Date: 20130930
  Transmission Date: 20140515
  Serious: No
  Sender: FDA-Public Use
  Company Number: US-AMGEN-USASP2013065884

PATIENT
  Age: 67 Year
  Sex: Female
  Weight: 79.37 kg

DRUGS (8)
  1. ENBREL [Suspect]
     Indication: PRODUCT USED FOR UNKNOWN INDICATION
     Dosage: 50 MG, QWK
     Route: 058
  2. CALCIUM [Concomitant]
     Dosage: 500 UNK, UNK
  3. FISH OIL [Concomitant]
     Dosage: UNK
  4. LEVOTHYROXIN [Concomitant]
     Dosage: 125 MUG, UNK
  5. LISINOPRIL [Concomitant]
     Dosage: 30 MG, UNK
  6. METOPROLOL [Concomitant]
     Dosage: 100 MG, UNK
  7. CYMBALTA [Concomitant]
     Dosage: 30 MG, UNK
  8. MULTIVITAMINS, PLAIN [Concomitant]
     Dosage: UNK

REACTIONS (2)
  - Cystitis [Unknown]
  - Rheumatoid arthritis [Unknown]
